FAERS Safety Report 20549397 (Version 1)
Quarter: 2022Q1

REPORT INFORMATION
  Report Type: Spontaneous
  Country: US (occurrence: US)
  Receive Date: 20220303
  Receipt Date: 20220303
  Transmission Date: 20220424
  Serious: No
  Sender: FDA-Public Use
  Company Number: US-ALLERGAN-2128658US

PATIENT
  Age: 58 Year
  Sex: Female

DRUGS (2)
  1. RESTASIS [Suspect]
     Active Substance: CYCLOSPORINE
     Indication: Dry eye
     Dosage: MAYBE 1.5 ML(NOT SURE)/1 DROP INTO EACH EYE IN THE MORNING AND AFTERNOON
     Route: 047
     Dates: start: 202107
  2. RESTASIS [Suspect]
     Active Substance: CYCLOSPORINE
     Dosage: MAYBE 1.5 ML(NOT SURE)/1 DROP INTO EACH EYE IN THE MORNING AND AFTERNOON
     Route: 047

REACTIONS (12)
  - Dry eye [Not Recovered/Not Resolved]
  - Eyelids pruritus [Recovered/Resolved]
  - Eye inflammation [Recovered/Resolved]
  - Lacrimation increased [Recovered/Resolved]
  - Swelling of eyelid [Recovering/Resolving]
  - Erythema of eyelid [Recovering/Resolving]
  - Eye swelling [Recovered/Resolved]
  - Ocular hyperaemia [Not Recovered/Not Resolved]
  - Eye pruritus [Recovered/Resolved]
  - Drug ineffective [Unknown]
  - Product quality issue [Unknown]
  - Eye irritation [Recovered/Resolved]

NARRATIVE: CASE EVENT DATE: 20210801
